FAERS Safety Report 5373816-5 (Version None)
Quarter: 2007Q2

REPORT INFORMATION
  Report Type: 
  Country: None (occurrence: None)
  Receive Date: 20070628
  Receipt Date: 20070619
  Transmission Date: 20071010
  Serious: Yes (Other)
  Sender: FDA-Public Use
  Company Number: FR-PFIZER INC-2007050418

PATIENT
  Sex: Female

DRUGS (1)
  1. LYRICA [Suspect]
     Indication: MYOPATHY
     Dates: start: 20070101, end: 20070101

REACTIONS (2)
  - OFF LABEL USE [None]
  - WEIGHT INCREASED [None]
